FAERS Safety Report 5444584-3 (Version None)
Quarter: 2007Q3

REPORT INFORMATION
  Report Type: 
  Country: None (occurrence: None)
  Receive Date: 20070906
  Receipt Date: 20070903
  Transmission Date: 20080115
  Serious: Yes (Death)
  Sender: FDA-Public Use
  Company Number: IL-SANOFI-SYNTHELABO-F01200700374

PATIENT
  Sex: Male

DRUGS (3)
  1. LEUCOVORIN CALCIUM [Suspect]
     Dosage: 388 MG
     Route: 042
     Dates: start: 20060719, end: 20060720
  2. FLUOROURACIL [Suspect]
     Dosage: 776 MG BOLUS THEN 2328 MG/M2 CONTINUOUS INFUSION D1-2
     Route: 042
     Dates: start: 20060719, end: 20060720
  3. OXALIPLATIN [Suspect]
     Indication: COLON CANCER
     Dosage: 164 MG
     Route: 042
     Dates: start: 20060719, end: 20060719

REACTIONS (1)
  - CRYPTOGENIC CIRRHOSIS [None]
